FAERS Safety Report 15352411 (Version 2)
Quarter: 2018Q4

REPORT INFORMATION
  Report Type: Spontaneous
  Country: US (occurrence: US)
  Receive Date: 20180905
  Receipt Date: 20181203
  Transmission Date: 20190204
  Serious: No
  Sender: FDA-Public Use
  Company Number: US-VIFOR (INTERNATIONAL) INC.-VIT-2018-08611

PATIENT
  Sex: Male
  Weight: 67.19 kg

DRUGS (15)
  1. VELTASSA [Suspect]
     Active Substance: PATIROMER
     Route: 048
  2. KALEXATE [Concomitant]
     Active Substance: SODIUM POLYSTYRENE SULFONATE
  3. MAGNESIUM GLUCONATE [Concomitant]
     Active Substance: MAGNESIUM GLUCONATE
  4. LASIX [Concomitant]
     Active Substance: FUROSEMIDE
  5. BASAGLAR [Concomitant]
     Active Substance: INSULIN GLARGINE
     Dosage: 25 UNITS IN THE MORNING AND 5 UNITS IN THE EVENING
  6. ALLOPURINOL. [Concomitant]
     Active Substance: ALLOPURINOL
  7. ZINC SULFATE [Concomitant]
     Active Substance: ZINC SULFATE\ZINC SULFATE ANHYDROUS
  8. VELTASSA [Suspect]
     Active Substance: PATIROMER
     Indication: HYPERKALAEMIA
     Route: 048
     Dates: start: 20160203
  9. GEMFIBROZIL. [Concomitant]
     Active Substance: GEMFIBROZIL
  10. FERROCITE [Concomitant]
     Active Substance: FERROUS FUMARATE
  11. LOSARTAN POTASSIUM. [Concomitant]
     Active Substance: LOSARTAN POTASSIUM
  12. VITAMIN D3 [Concomitant]
     Active Substance: CHOLECALCIFEROL
  13. LIPITOR [Concomitant]
     Active Substance: ATORVASTATIN CALCIUM
  14. ASPIRIN. [Concomitant]
     Active Substance: ASPIRIN
  15. HYDRALAZINE [Concomitant]
     Active Substance: HYDRALAZINE HYDROCHLORIDE

REACTIONS (1)
  - Blood potassium increased [Recovered/Resolved]
